FAERS Safety Report 8013237-X (Version None)
Quarter: 2011Q4

REPORT INFORMATION
  Report Type: 
  Country: None (occurrence: None)
  Receive Date: 20111229
  Receipt Date: 20111229
  Transmission Date: 20120403
  Serious: Yes (Hospitalization)
  Sender: FDA-Public Use
  Company Number: None

PATIENT
  Age: 76 Year
  Sex: Male
  Weight: 83.4 kg

DRUGS (14)
  1. LEVOTHYROXINE SODIUM [Concomitant]
  2. MULTI-VITAMIN [Concomitant]
  3. CALCIUM ACETATE [Concomitant]
  4. FUROSEMIDE [Concomitant]
  5. SIMVASTATIN [Concomitant]
  6. CUBICIN [Suspect]
     Indication: OSTEOMYELITIS
     Dosage: 750 MG
     Route: 042
     Dates: start: 20111110, end: 20111127
  7. GLARGINE [Concomitant]
  8. DILTIAZEM HCL [Concomitant]
  9. GABAPENTIN [Concomitant]
  10. ASPIRIN [Concomitant]
     Route: 048
  11. OXYCODONE HCL [Concomitant]
  12. CHOLECALCIFEROL [Concomitant]
  13. ISOSORBIDE MONONITRATE [Concomitant]
  14. OMEPRAZOLE [Concomitant]

REACTIONS (1)
  - EOSINOPHILIC PNEUMONIA [None]
